FAERS Safety Report 6255097-3 (Version None)
Quarter: 2009Q3

REPORT INFORMATION
  Report Type: 
  Country: None (occurrence: None)
  Receive Date: 20090702
  Receipt Date: 20090623
  Transmission Date: 20100115
  Serious: Yes (Other)
  Sender: FDA-Public Use
  Company Number: BR-PFIZER INC-2009230997

PATIENT
  Age: 60 Year

DRUGS (7)
  1. FRONTAL [Suspect]
     Dates: start: 20090301
  2. CHAMPIX [Suspect]
     Indication: TOBACCO USER
     Dosage: 0.5 MG, 1X/DAY
     Dates: start: 20090622
  3. DIAZEPAM [Suspect]
     Indication: ANXIETY
     Dosage: UNK
     Dates: start: 19990101
  4. DIAZEPAM [Suspect]
     Indication: INSOMNIA
  5. NEOSALDINA [Concomitant]
     Indication: HEADACHE
     Dosage: UNK
  6. ASCORBIC ACID [Concomitant]
     Dosage: UNK
  7. VITAMIN B COMPLEX CAP [Concomitant]
     Dosage: UNK
     Dates: end: 20090607

REACTIONS (7)
  - ABDOMINAL PAIN [None]
  - DANDRUFF [None]
  - DIARRHOEA [None]
  - EMPHYSEMA [None]
  - INSOMNIA [None]
  - PNEUMONIA [None]
  - RASH [None]
